FAERS Safety Report 8351102-9 (Version None)
Quarter: 2012Q2

REPORT INFORMATION
  Report Type: 
  Country: None (occurrence: None)
  Receive Date: 20120510
  Receipt Date: 20120503
  Transmission Date: 20120825
  Serious: Yes (Other)
  Sender: FDA-Public Use
  Company Number: DE-ROXANE LABORATORIES, INC.-2012-RO-01174RO

PATIENT
  Age: 9 Year
  Sex: Male

DRUGS (1)
  1. DEXAMETHASONE [Suspect]
     Indication: RADIATION NECROSIS
     Dosage: 12 MG

REACTIONS (5)
  - HYPERTENSION [None]
  - BODY MASS INDEX INCREASED [None]
  - CUSHING'S SYNDROME [None]
  - SKIN STRIAE [None]
  - SKIN ULCER [None]
